FAERS Safety Report 23798087 (Version 1)
Quarter: 2024Q2

REPORT INFORMATION
  Report Type: Spontaneous
  Country: IT (occurrence: None)
  Receive Date: 20240430
  Receipt Date: 20240430
  Transmission Date: 20240715
  Serious: Yes (Other)
  Sender: FDA-Public Use
  Company Number: IT-ROCHE-3548841

PATIENT
  Age: 59 Year
  Sex: Male

DRUGS (1)
  1. OCREVUS [Suspect]
     Active Substance: OCRELIZUMAB
     Indication: Multiple sclerosis
     Dosage: LAST ADMINISTRATION OCTOBER 2023
     Route: 065
     Dates: start: 2016

REACTIONS (2)
  - Pneumonia [Unknown]
  - Hypergammaglobulinaemia [Unknown]

NARRATIVE: CASE EVENT DATE: 20230601
